FAERS Safety Report 10525875 (Version 3)
Quarter: 2014Q4

REPORT INFORMATION
  Report Type: Report from Study
  Country: CA (occurrence: CA)
  Receive Date: 20141017
  Receipt Date: 20141209
  Transmission Date: 20150528
  Serious: Yes (Hospitalization, Other)
  Sender: FDA-Public Use
  Company Number: PHHY2014CA130472

PATIENT
  Age: 34 Year
  Sex: Male
  Weight: 82 kg

DRUGS (18)
  1. METFORMIN HCL [Concomitant]
     Active Substance: METFORMIN HYDROCHLORIDE
     Indication: PRODUCT USED FOR UNKNOWN INDICATION
     Dosage: 4 DF, QD (DIVIDED DOSES)
     Route: 065
     Dates: start: 20140912
  2. GLYBURIDE. [Concomitant]
     Active Substance: GLYBURIDE
     Indication: PRODUCT USED FOR UNKNOWN INDICATION
     Dosage: 2 DF, BID
     Route: 065
     Dates: start: 20140912
  3. INFLUENZA [Concomitant]
     Active Substance: INFLUENZA VIRUS VACCINE
     Dosage: UNK
     Dates: start: 20121101
  4. CLOZARIL [Suspect]
     Active Substance: CLOZAPINE
     Dosage: 100 MG, BID
     Route: 048
     Dates: end: 20141124
  5. ALPRAZOLAM. [Concomitant]
     Active Substance: ALPRAZOLAM
     Indication: PRODUCT USED FOR UNKNOWN INDICATION
     Dosage: UNK, TID
     Route: 048
     Dates: start: 20140912
  6. CLOZARIL [Suspect]
     Active Substance: CLOZAPINE
     Indication: PSYCHOTIC DISORDER
     Dosage: UNK, BID
     Route: 048
     Dates: start: 20140909
  7. GEN-PAROXETINE [Concomitant]
     Indication: PRODUCT USED FOR UNKNOWN INDICATION
     Dosage: 1.5 DF, QD (ONCE DAILY)
     Route: 048
     Dates: start: 20140912
  8. CLOZARIL [Suspect]
     Active Substance: CLOZAPINE
     Indication: SCHIZOPHRENIA
     Dosage: UNK
     Route: 048
     Dates: start: 20000121
  9. VITAMIN D [Concomitant]
     Active Substance: CHOLECALCIFEROL
     Indication: PRODUCT USED FOR UNKNOWN INDICATION
     Dosage: UNK
     Route: 065
  10. SALMON OIL [Concomitant]
     Active Substance: FISH OIL
     Indication: PRODUCT USED FOR UNKNOWN INDICATION
     Route: 065
  11. INFLUENZA [Concomitant]
     Active Substance: INFLUENZA VIRUS VACCINE
     Dosage: UNK
     Route: 065
     Dates: start: 20111025
  12. INFLUENZA [Concomitant]
     Active Substance: INFLUENZA VIRUS VACCINE
     Dosage: UNK
     Dates: start: 20131105
  13. BETAMETHASONE VALERATE. [Concomitant]
     Active Substance: BETAMETHASONE VALERATE
     Indication: PRODUCT USED FOR UNKNOWN INDICATION
     Dosage: UNK, BID (APPLIED TO AFFECTED AREAS AS NEEDED, SPARINGLY FOR UP TO ONE MONTH)
     Route: 061
     Dates: start: 20130304
  14. LITHIUM [Concomitant]
     Active Substance: LITHIUM CARBONATE
     Indication: PRODUCT USED FOR UNKNOWN INDICATION
     Route: 065
  15. VITAMIN B12 [Concomitant]
     Active Substance: CYANOCOBALAMIN
     Indication: PRODUCT USED FOR UNKNOWN INDICATION
     Route: 065
  16. APO-LITHIUM CARBONATE [Concomitant]
     Indication: PRODUCT USED FOR UNKNOWN INDICATION
     Dosage: UNK, QD (EVERY DAY AT BEDTIME)
     Route: 048
     Dates: start: 20140912
  17. INFLUENZA [Concomitant]
     Active Substance: INFLUENZA VIRUS VACCINE
     Indication: IMMUNISATION
     Dosage: UNK
     Route: 065
     Dates: start: 20081110
  18. INFLUENZA [Concomitant]
     Active Substance: INFLUENZA VIRUS VACCINE
     Dosage: UNK
     Route: 065
     Dates: start: 20101019

REACTIONS (15)
  - Electrocardiogram QRS complex abnormal [Not Recovered/Not Resolved]
  - Seborrhoeic dermatitis [Recovered/Resolved]
  - Rash [Recovered/Resolved]
  - Perichondritis [Recovered/Resolved]
  - Ear pain [Unknown]
  - Blood pressure diastolic decreased [Unknown]
  - Weight increased [Unknown]
  - Blood pressure systolic increased [Unknown]
  - Schizophrenia [Unknown]
  - Fatigue [Unknown]
  - Diabetes mellitus [Unknown]
  - Prurigo [Recovered/Resolved]
  - Sebaceous gland disorder [Unknown]
  - Tinea cruris [Unknown]
  - Electrocardiogram abnormal [Not Recovered/Not Resolved]

NARRATIVE: CASE EVENT DATE: 20080714
